FAERS Safety Report 10052287 (Version 1)
Quarter: 2014Q2

REPORT INFORMATION
  Report Type: Spontaneous
  Country: FR (occurrence: FR)
  Receive Date: 20140402
  Receipt Date: 20140402
  Transmission Date: 20141212
  Serious: Yes (Hospitalization)
  Sender: FDA-Public Use
  Company Number: FR-ASTRAZENECA-2014SE21417

PATIENT
  Age: 12950 Day
  Sex: Female
  Weight: 145 kg

DRUGS (6)
  1. INEXIUM [Suspect]
     Route: 042
     Dates: start: 20140129, end: 20140129
  2. NEXIUM [Suspect]
     Route: 048
     Dates: start: 2014, end: 2014
  3. NOZINAN [Suspect]
     Route: 042
     Dates: start: 20140126, end: 20140129
  4. CANCIDAS [Suspect]
     Indication: CANDIDA INFECTION
     Route: 042
     Dates: start: 20140115, end: 20140128
  5. ADRENALINE [Concomitant]
  6. SODIUM HEPARINATE [Concomitant]

REACTIONS (4)
  - Bone marrow failure [Recovering/Resolving]
  - Candida infection [Unknown]
  - Sepsis [Unknown]
  - Agranulocytosis [Recovered/Resolved]
